FAERS Safety Report 14071901 (Version 2)
Quarter: 2020Q2

REPORT INFORMATION
  Report Type: Report from Study
  Country: US (occurrence: US)
  Receive Date: 20171010
  Receipt Date: 20200416
  Transmission Date: 20200713
  Serious: No
  Sender: FDA-Public Use
  Company Number: US-SA-2017SA141551

PATIENT
  Age: 25 Year
  Sex: Male

DRUGS (3)
  1. DUPILUMAB [Suspect]
     Active Substance: DUPILUMAB
     Dosage: 300 MG,QOW
     Route: 058
     Dates: start: 20170608
  2. DUPILUMAB [Suspect]
     Active Substance: DUPILUMAB
     Dosage: 300 MG, QOW
     Route: 058
  3. DUPILUMAB [Suspect]
     Active Substance: DUPILUMAB
     Indication: DERMATITIS ATOPIC
     Dosage: 600 MG,1X
     Route: 058
     Dates: start: 2017, end: 2017

REACTIONS (14)
  - Lacrimation increased [Recovering/Resolving]
  - Eye pruritus [Not Recovered/Not Resolved]
  - Eye pain [Recovering/Resolving]
  - Ocular hyperaemia [Unknown]
  - Product use issue [Unknown]
  - Hordeolum [Not Recovered/Not Resolved]
  - Eye inflammation [Recovering/Resolving]
  - Eye irritation [Recovering/Resolving]
  - Eye pain [Not Recovered/Not Resolved]
  - Eye swelling [Unknown]
  - Eye pruritus [Recovering/Resolving]
  - Foreign body sensation in eyes [Not Recovered/Not Resolved]
  - Eye discharge [Unknown]
  - Conjunctivitis [Not Recovered/Not Resolved]

NARRATIVE: CASE EVENT DATE: 2017
